FAERS Safety Report 4301435-8 (Version None)
Quarter: 2004Q1

REPORT INFORMATION
  Report Type: 
  Country: None (occurrence: None)
  Receive Date: 20040219
  Receipt Date: 20040205
  Transmission Date: 20041129
  Serious: Yes (Death)
  Sender: FDA-Public Use
  Company Number: K200400172

PATIENT
  Sex: Male

DRUGS (1)
  1. KETALAR [Suspect]

REACTIONS (1)
  - ACCIDENT [None]
